FAERS Safety Report 5361824-X (Version None)
Quarter: 2007Q2

REPORT INFORMATION
  Report Type: 
  Country: None (occurrence: None)
  Receive Date: 20070530
  Receipt Date: 20070212
  Transmission Date: 20071010
  Serious: No
  Sender: FDA-Public Use
  Company Number: 2006PV027360

PATIENT
  Age: 57 Year
  Sex: Female
  Weight: 77.1115 kg

DRUGS (7)
  1. BYETTA [Suspect]
     Indication: DIABETES MELLITUS NON-INSULIN-DEPENDENT
     Dosage: 10 MCG; BID; SC, 5 MCG;BID;SC, 5 MCG;BID;SC, 10 MCG;BID;SC
     Route: 058
     Dates: start: 20061101, end: 20061217
  2. BYETTA [Suspect]
     Indication: DIABETES MELLITUS NON-INSULIN-DEPENDENT
     Dosage: 10 MCG; BID; SC, 5 MCG;BID;SC, 5 MCG;BID;SC, 10 MCG;BID;SC
     Route: 058
     Dates: start: 20061201, end: 20070118
  3. BYETTA [Suspect]
     Indication: DIABETES MELLITUS NON-INSULIN-DEPENDENT
     Dosage: 10 MCG; BID; SC, 5 MCG;BID;SC, 5 MCG;BID;SC, 10 MCG;BID;SC
     Route: 058
     Dates: start: 20061218
  4. BYETTA [Suspect]
     Indication: DIABETES MELLITUS NON-INSULIN-DEPENDENT
     Dosage: 10 MCG; BID; SC, 5 MCG;BID;SC, 5 MCG;BID;SC, 10 MCG;BID;SC
     Route: 058
     Dates: start: 20070118
  5. METFORMIN HCL [Concomitant]
  6. LANTUS [Concomitant]
  7. AVANDARYL [Concomitant]

REACTIONS (6)
  - BLOOD GLUCOSE INCREASED [None]
  - DRUG INEFFECTIVE [None]
  - FEELING ABNORMAL [None]
  - INJECTION SITE EXTRAVASATION [None]
  - NAUSEA [None]
  - STOMACH DISCOMFORT [None]
